FAERS Safety Report 25633633 (Version 1)
Quarter: 2025Q3

REPORT INFORMATION
  Report Type: Spontaneous
  Country: US (occurrence: US)
  Receive Date: 20250801
  Receipt Date: 20250801
  Transmission Date: 20251021
  Serious: Yes (Other)
  Sender: ALEXION PHARMACEUTICALS
  Company Number: US-ASTRAZENECA-202507GLO012416US

PATIENT
  Age: 62 Year
  Sex: Female
  Weight: 173 kg

DRUGS (17)
  1. NEXIUM [Suspect]
     Active Substance: ESOMEPRAZOLE MAGNESIUM
  2. METFORMIN [Concomitant]
     Active Substance: METFORMIN HYDROCHLORIDE
  3. PLAVIX [Concomitant]
     Active Substance: CLOPIDOGREL BISULFATE
  4. CYMBALTA [Concomitant]
     Active Substance: DULOXETINE HYDROCHLORIDE
  5. PERCOCET [Concomitant]
     Active Substance: ACETAMINOPHEN\OXYCODONE HYDROCHLORIDE
  6. MORPHINE [Concomitant]
     Active Substance: MORPHINE
  7. CLONAZEPAM [Concomitant]
     Active Substance: CLONAZEPAM
  8. ASPIRIN [Concomitant]
     Active Substance: ASPIRIN
  9. JARDIANCE [Concomitant]
     Active Substance: EMPAGLIFLOZIN
  10. DOXYCYCLINE [Concomitant]
     Active Substance: DOXYCYCLINE
  11. GABAPENTIN [Concomitant]
     Active Substance: GABAPENTIN
  12. BUMETANIDE [Concomitant]
     Active Substance: BUMETANIDE
  13. AZITHROMYCIN [Concomitant]
     Active Substance: AZITHROMYCIN
  14. FUROSEMIDE [Concomitant]
     Active Substance: FUROSEMIDE
  15. NAPROXEN [Concomitant]
     Active Substance: NAPROXEN
  16. DIAZEPAM [Concomitant]
     Active Substance: DIAZEPAM
  17. MUCINEX [Concomitant]
     Active Substance: GUAIFENESIN

REACTIONS (1)
  - Gastric cancer [Unknown]
